FAERS Safety Report 7270927-4 (Version None)
Quarter: 2011Q1

REPORT INFORMATION
  Report Type: 
  Country: None (occurrence: None)
  Receive Date: 20110125
  Receipt Date: 20110125
  Transmission Date: 20110831
  Serious: Yes (Hospitalization)
  Sender: FDA-Public Use
  Company Number: None

PATIENT
  Age: 64 Year
  Sex: Male
  Weight: 88 kg

DRUGS (3)
  1. MORPHINE [Suspect]
     Indication: PAIN
     Dosage: 30 MG BID PO
     Route: 048
     Dates: start: 20100812
  2. CALCIUM CARBONATE [Suspect]
     Indication: SMOKING CESSATION THERAPY
     Dosage: 1.25 GM TID PO
     Route: 048
     Dates: start: 20100212, end: 20100910
  3. CALCIUM CARBONATE [Suspect]
     Indication: OSTEOPATHIC TREATMENT
     Dosage: 1.25 GM TID PO
     Route: 048
     Dates: start: 20100212, end: 20100910

REACTIONS (2)
  - CONSTIPATION [None]
  - FAECALOMA [None]
